FAERS Safety Report 21741900 (Version 1)
Quarter: 2022Q4

REPORT INFORMATION
  Report Type: Spontaneous
  Country: US (occurrence: None)
  Receive Date: 20221216
  Receipt Date: 20221216
  Transmission Date: 20230112
  Serious: Yes (Life-Threatening, Hospitalization)
  Sender: FDA-Public Use
  Company Number: None

PATIENT
  Age: 7 Year
  Sex: Female
  Weight: 27 kg

DRUGS (1)
  1. MUCINEX INSTASOOTHE SORE THROAT PLUS PAIN RELIEF [Suspect]
     Active Substance: BENZOCAINE\MENTHOL
     Indication: Upper respiratory tract infection
     Dosage: FREQUENCY : 4 TIMES A DAY;?
     Route: 049
     Dates: start: 20221210, end: 20221210

REACTIONS (8)
  - Mental disorder [None]
  - Seizure [None]
  - Hypoxia [None]
  - Hypotension [None]
  - Bradycardia [None]
  - Blood lactic acid increased [None]
  - Methaemoglobinaemia [None]
  - Vasoplegia syndrome [None]

NARRATIVE: CASE EVENT DATE: 20221210
